FAERS Safety Report 9501456 (Version 2)
Quarter: 2013Q3

REPORT INFORMATION
  Report Type: Spontaneous
  Country: PT (occurrence: PT)
  Receive Date: 20130905
  Receipt Date: 20130906
  Transmission Date: 20140515
  Serious: Yes (Other)
  Sender: FDA-Public Use
  Company Number: PT-GLAXOSMITHKLINE-B0918025A

PATIENT
  Age: 61 Year
  Sex: Male

DRUGS (6)
  1. BRISOMAX [Suspect]
     Indication: ASTHMA
     Route: 055
     Dates: start: 201307, end: 201307
  2. SINGULAIR [Concomitant]
  3. SYMBICORT TURBOHALER [Concomitant]
  4. PRAVASTATIN [Concomitant]
     Indication: BLOOD CHOLESTEROL
     Dosage: 10MG PER DAY
     Route: 048
  5. OMEPRAZOL [Concomitant]
     Route: 048
  6. CORTISONE [Concomitant]

REACTIONS (5)
  - Asthmatic crisis [Recovered/Resolved]
  - Drug ineffective [Recovered/Resolved]
  - Cough [Recovered/Resolved]
  - Dyspnoea [Recovered/Resolved]
  - Product quality issue [Unknown]
